FAERS Safety Report 25821121 (Version 1)
Quarter: 2025Q3

REPORT INFORMATION
  Report Type: Spontaneous
  Country: JP (occurrence: JP)
  Receive Date: 20250919
  Receipt Date: 20250919
  Transmission Date: 20251020
  Serious: No
  Sender: ALKEM
  Company Number: JP-ALKEM LABORATORIES LIMITED-JP-ALKEM-2025-06244

PATIENT
  Age: 50 Year
  Sex: Female

DRUGS (12)
  1. DULOXETINE HYDROCHLORIDE [Suspect]
     Active Substance: DULOXETINE HYDROCHLORIDE
     Indication: Depression
     Dosage: 20 MILLIGRAM, QD (DAILY)
     Route: 065
  2. AZILSARTAN KAMEDOXOMIL [Concomitant]
     Active Substance: AZILSARTAN KAMEDOXOMIL
     Indication: Product used for unknown indication
     Dosage: 20 MILLIGRAM, QD
     Route: 065
  3. BISOPROLOL [Concomitant]
     Active Substance: BISOPROLOL
     Indication: Long QT syndrome congenital
     Dosage: 2.5 MILLIGRAM, QD
     Route: 065
  4. BISOPROLOL [Concomitant]
     Active Substance: BISOPROLOL
     Dosage: 5 MILLIGRAM, QD
     Route: 065
  5. ESZOPICLONE [Concomitant]
     Active Substance: ESZOPICLONE
     Indication: Depression
     Dosage: 3 MILLIGRAM, QD (INCREASED DOSE)
     Route: 065
  6. ESZOPICLONE [Concomitant]
     Active Substance: ESZOPICLONE
     Indication: Insomnia
     Dosage: 2 MILLIGRAM, QD
     Route: 065
  7. ETIZOLAM [Concomitant]
     Active Substance: ETIZOLAM
     Indication: Insomnia
     Dosage: 0.5 MILLIGRAM, QD
     Route: 065
  8. ETIZOLAM [Concomitant]
     Active Substance: ETIZOLAM
     Indication: Anxiety
  9. RAMELTEON [Concomitant]
     Active Substance: RAMELTEON
     Indication: Depression
     Dosage: 8 MILLIGRAM, QD
     Route: 065
  10. RAMELTEON [Concomitant]
     Active Substance: RAMELTEON
     Indication: Insomnia
  11. SUVOREXANT [Concomitant]
     Active Substance: SUVOREXANT
     Indication: Depression
     Dosage: 20 MILLIGRAM, QD
     Route: 065
  12. SUVOREXANT [Concomitant]
     Active Substance: SUVOREXANT
     Indication: Insomnia

REACTIONS (1)
  - Drug ineffective [Unknown]
